FAERS Safety Report 6668734-6 (Version None)
Quarter: 2010Q2

REPORT INFORMATION
  Report Type: 
  Country: None (occurrence: None)
  Receive Date: 20100406
  Receipt Date: 20100401
  Transmission Date: 20101027
  Serious: Yes (Other)
  Sender: FDA-Public Use
  Company Number: IL-JNJCH-2010007953

PATIENT
  Sex: Female

DRUGS (1)
  1. LISTERINE COOLMINT [Suspect]
     Indication: DRUG USE FOR UNKNOWN INDICATION
     Dosage: TEXT:ONCE
     Route: 048

REACTIONS (1)
  - APPLICATION SITE BURN [None]
